FAERS Safety Report 5782569-8 (Version None)
Quarter: 2008Q2

REPORT INFORMATION
  Report Type: 
  Country: None (occurrence: None)
  Receive Date: 20080623
  Receipt Date: 20080611
  Transmission Date: 20081010
  Serious: Yes (Other)
  Sender: FDA-Public Use
  Company Number: FR-PFIZER INC-2008049810

PATIENT
  Age: 77 Year
  Sex: Male

DRUGS (3)
  1. LYRICA [Suspect]
     Dates: start: 20080501, end: 20080601
  2. AMITRIPTYLINE HCL [Concomitant]
  3. ACUPAN [Concomitant]

REACTIONS (4)
  - CREATININE RENAL CLEARANCE DECREASED [None]
  - DEHYDRATION [None]
  - FLUID INTAKE REDUCED [None]
  - HYPERSOMNIA [None]
